FAERS Safety Report 6304407-7 (Version None)
Quarter: 2009Q3

REPORT INFORMATION
  Report Type: 
  Country: None (occurrence: None)
  Receive Date: 20090811
  Receipt Date: 20090805
  Transmission Date: 20100115
  Serious: Yes (Death, Other)
  Sender: FDA-Public Use
  Company Number: PHHY2009PL32979

PATIENT

DRUGS (3)
  1. CYCLOSPORINE [Suspect]
     Indication: STEM CELL TRANSPLANT
  2. METHOTREXATE [Suspect]
     Indication: PROPHYLAXIS AGAINST GRAFT VERSUS HOST DISEASE
  3. CYCLOPHOSPHAMIDE [Concomitant]
     Indication: STEM CELL TRANSPLANT
     Dosage: 120 MG/KG, UNK

REACTIONS (3)
  - ACUTE GRAFT VERSUS HOST DISEASE IN INTESTINE [None]
  - CELL MARKER INCREASED [None]
  - SEPSIS [None]
